FAERS Safety Report 4638458-5 (Version None)
Quarter: 2005Q2

REPORT INFORMATION
  Report Type: 
  Country: None (occurrence: None)
  Receive Date: 20050418
  Receipt Date: 20050405
  Transmission Date: 20051028
  Serious: Yes (Hospitalization)
  Sender: FDA-Public Use
  Company Number: 2005054560

PATIENT
  Age: 81 Year
  Sex: Male

DRUGS (5)
  1. AZITHROMYCIN [Suspect]
     Indication: BRONCHITIS ACUTE
     Dosage: 250 MG (DAILY), ORAL
     Route: 048
  2. ATORVASTATIN CALCIUM [Concomitant]
  3. OMEPRAZOLE [Concomitant]
  4. FLUOXETINE [Concomitant]
  5. LORMETAZEPAM (LORMETAZEPAM) [Concomitant]

REACTIONS (8)
  - CEREBRAL ATROPHY [None]
  - CONFUSIONAL STATE [None]
  - DELIRIUM [None]
  - DISORIENTATION [None]
  - DISTURBANCE IN ATTENTION [None]
  - HALLUCINATION, VISUAL [None]
  - SLEEP DISORDER [None]
  - SPEECH DISORDER [None]
